FAERS Safety Report 24257795 (Version 3)
Quarter: 2024Q4

REPORT INFORMATION
  Report Type: Report from Study
  Country: CO (occurrence: CO)
  Receive Date: 20240828
  Receipt Date: 20241017
  Transmission Date: 20250114
  Serious: Yes (Hospitalization, Other)
  Sender: ROCHE
  Company Number: CO-002147023-NVSC2024CO148421

PATIENT
  Sex: Female
  Weight: 62 kg

DRUGS (4)
  1. XOLAIR [Suspect]
     Active Substance: OMALIZUMAB
     Indication: Urticaria
     Dosage: 300 MG, QW
     Route: 050
     Dates: start: 20240715
  2. XOLAIR [Suspect]
     Active Substance: OMALIZUMAB
     Indication: Chronic spontaneous urticaria
     Dosage: 300 MG, QMO
     Route: 050
     Dates: end: 20240812
  3. FEXOFENADINE [Concomitant]
     Active Substance: FEXOFENADINE HYDROCHLORIDE
     Indication: Chronic spontaneous urticaria
     Dosage: UNK
     Route: 065
     Dates: end: 202401
  4. QUETIAPINE [Concomitant]
     Active Substance: QUETIAPINE

REACTIONS (19)
  - Cyclic vomiting syndrome [Recovered/Resolved]
  - Procedural vomiting [Recovered/Resolved]
  - Urticaria [Not Recovered/Not Resolved]
  - Blood pressure increased [Unknown]
  - Blood pressure diastolic decreased [Unknown]
  - Inappropriate schedule of product administration [Unknown]
  - Flushing [Recovered/Resolved]
  - Erythema [Recovered/Resolved]
  - Nausea [Recovered/Resolved]
  - Rash [Unknown]
  - Malaise [Recovered/Resolved]
  - Hypersensitivity [Recovered/Resolved]
  - Chest pain [Recovered/Resolved]
  - Bone pain [Recovered/Resolved]
  - Dizziness [Not Recovered/Not Resolved]
  - Vomiting [Recovered/Resolved]
  - Discouragement [Not Recovered/Not Resolved]
  - Cold sweat [Unknown]
  - Fatigue [Unknown]

NARRATIVE: CASE EVENT DATE: 20240812
